FAERS Safety Report 21842330 (Version 1)
Quarter: 2023Q1

REPORT INFORMATION
  Report Type: Report from Study
  Country: CO (occurrence: CO)
  Receive Date: 20230110
  Receipt Date: 20230110
  Transmission Date: 20230418
  Serious: Yes (Other)
  Sender: FDA-Public Use
  Company Number: CO-BAYER-2023A002129

PATIENT
  Sex: Female

DRUGS (3)
  1. EYLEA [Suspect]
     Active Substance: AFLIBERCEPT
     Indication: Age-related macular degeneration
     Dosage: BOTH EYES; SOLUTION FOR INJECTION, STRENGTH: 40 MG/ML
     Dates: start: 20220519, end: 20220519
  2. EYLEA [Suspect]
     Active Substance: AFLIBERCEPT
     Dosage: BOTH EYES; SOLUTION FOR INJECTION, STRENGTH: 40 MG/ML
     Dates: start: 20220616, end: 20220616
  3. EYLEA [Suspect]
     Active Substance: AFLIBERCEPT
     Dosage: BOTH EYES; SOLUTION FOR INJECTION, STRENGTH: 40 MG/ML
     Dates: start: 20220718, end: 20220718

REACTIONS (1)
  - Blindness [Not Recovered/Not Resolved]

NARRATIVE: CASE EVENT DATE: 20220701
